FAERS Safety Report 13995792 (Version 1)
Quarter: 2017Q3

REPORT INFORMATION
  Report Type: Report from Study
  Country: IT (occurrence: IT)
  Receive Date: 20170921
  Receipt Date: 20170921
  Transmission Date: 20171128
  Serious: Yes (Other)
  Sender: FDA-Public Use
  Company Number: IT-ACCORD-058714

PATIENT
  Sex: Female

DRUGS (6)
  1. DEPAKIN [Concomitant]
     Active Substance: VALPROATE SODIUM
     Indication: EPILEPSY
  2. RIVOTRIL [Concomitant]
     Active Substance: CLONAZEPAM
     Indication: EPILEPSY
  3. NORLEVO [Concomitant]
     Active Substance: LEVONORGESTREL
     Indication: PRODUCT USED FOR UNKNOWN INDICATION
  4. FOLINA [Concomitant]
     Active Substance: FOLIC ACID
     Indication: EPILEPSY
  5. LEVETIRACETAM. [Suspect]
     Active Substance: LEVETIRACETAM
     Indication: EPILEPSY
  6. SEROQUEL [Concomitant]
     Active Substance: QUETIAPINE FUMARATE
     Indication: EPILEPSY

REACTIONS (6)
  - Mental impairment [Unknown]
  - Agitation [Unknown]
  - Mood swings [Unknown]
  - Anger [Unknown]
  - Breast swelling [Unknown]
  - Pollakiuria [Unknown]
